FAERS Safety Report 20737062 (Version 1)
Quarter: 2022Q2

REPORT INFORMATION
  Report Type: Spontaneous
  Country: US (occurrence: US)
  Receive Date: 20220421
  Receipt Date: 20220421
  Transmission Date: 20220720
  Serious: No
  Sender: FDA-Public Use
  Company Number: US-PFIZER INC-2021711777

PATIENT

DRUGS (3)
  1. GABAPENTIN [Suspect]
     Active Substance: GABAPENTIN
     Indication: Back disorder
     Dosage: UNK
  2. PREVACID [Concomitant]
     Active Substance: LANSOPRAZOLE
     Indication: Gastrooesophageal reflux disease
     Dosage: 1 IN THE MORNING
  3. GAVISCON [ALUMINIUM HYDROXIDE;MAGNESIUM CARBONATE] [Concomitant]
     Indication: Gastrooesophageal reflux disease
     Dosage: 1 IN THE EVENING

REACTIONS (2)
  - Therapeutic response unexpected [Unknown]
  - Off label use [Unknown]
